FAERS Safety Report 6421483-1 (Version None)
Quarter: 2009Q4

REPORT INFORMATION
  Report Type: 
  Country: None (occurrence: None)
  Receive Date: 20091030
  Receipt Date: 20090325
  Transmission Date: 20100525
  Serious: Yes (Hospitalization)
  Sender: FDA-Public Use
  Company Number: FR-PFIZER-2009189804

PATIENT
  Age: 73 Year

DRUGS (13)
  1. SOLU-MEDROL [Suspect]
     Indication: BONE MARROW FAILURE
     Dosage: 50 MG, 1X/DAY
     Route: 042
     Dates: start: 20081028
  2. ANTILYMPHOCYTE IMMUNOGLOBULINS [Suspect]
     Indication: BONE MARROW FAILURE
     Dosage: 200 MG, 1X/DAY
     Route: 042
     Dates: start: 20081028
  3. HALDOL [Suspect]
     Indication: TRANSIENT PSYCHOSIS
     Dosage: 5 MG, 1X/DAY
     Route: 042
     Dates: start: 20081031, end: 20081101
  4. NOXAFIL [Interacting]
     Dosage: 200 MG, 3X/DAY
     Dates: start: 20081023, end: 20081031
  5. LASILIX [Concomitant]
     Dosage: UNK
  6. MOPRAL [Concomitant]
  7. HEMIGOXINE NATIVELLE [Concomitant]
  8. PREVISCAN [Concomitant]
  9. SOLUPRED [Concomitant]
  10. SANDIMMUNE [Interacting]
     Dosage: 100 MG, 1X/DAY
     Route: 042
  11. CORDARONE [Interacting]
     Dosage: UNK
     Dates: start: 20080701, end: 20081110
  12. POLARAMINE [Concomitant]
     Indication: BONE MARROW FAILURE
     Dosage: UNK
     Dates: start: 20080101, end: 20080101
  13. RITUXIMAB [Concomitant]
     Indication: BONE MARROW FAILURE
     Dosage: UNK
     Dates: start: 20081023

REACTIONS (1)
  - MESENTERIC VEIN THROMBOSIS [None]
